FAERS Safety Report 13822066 (Version 1)
Quarter: 2017Q3

REPORT INFORMATION
  Report Type: Spontaneous
  Country: US (occurrence: US)
  Receive Date: 20170801
  Receipt Date: 20170801
  Transmission Date: 20171127
  Serious: Yes (Hospitalization)
  Sender: FDA-Public Use
  Company Number: None

PATIENT
  Age: 83 Year
  Sex: Female
  Weight: 60.84 kg

DRUGS (7)
  1. LOSARTIN [Concomitant]
     Active Substance: LOSARTAN
  2. VITAMIN B COMPLEX [Concomitant]
     Active Substance: CYANOCOBALAMIN\DEXPANTHENOL\NIACINAMIDE\PYRIDOXINE HYDROCHLORIDE\RIBOFLAVIN 5^-PHOSPHATE SODIUM\THIAMINE HYDROCHLORIDE\VITAMIN B COMPLEX
  3. BIOTIN [Concomitant]
     Active Substance: BIOTIN
  4. COSAMIN [Concomitant]
  5. D [Concomitant]
  6. IBANDRONATE SODIUM TABLETS [Suspect]
     Active Substance: IBANDRONATE SODIUM
     Indication: BONE LOSS
     Dosage: 150 MG 3 ONCE A MONTH BY MOUTH WITH FULL GLASS OF WATER
     Route: 048
     Dates: start: 20170706
  7. FLAXSEED [Concomitant]
     Active Substance: FLAX SEED

REACTIONS (5)
  - Movement disorder [None]
  - Asthenia [None]
  - Musculoskeletal disorder [None]
  - Unevaluable event [None]
  - Malaise [None]

NARRATIVE: CASE EVENT DATE: 20170708
